FAERS Safety Report 25819611 (Version 1)
Quarter: 2025Q3

REPORT INFORMATION
  Report Type: Spontaneous
  Country: CA (occurrence: CA)
  Receive Date: 20250918
  Receipt Date: 20250918
  Transmission Date: 20251021
  Serious: Yes (Disabling)
  Sender: MILLICENT HOLDINGS
  Company Number: CA-Millicent Holdings Ltd.-MILL20250281

PATIENT
  Age: 63 Year
  Sex: Female

DRUGS (9)
  1. INTRAROSA [Suspect]
     Active Substance: PRASTERONE
     Indication: Vulvovaginal dryness
     Dosage: VAGINAL OVULES.
     Route: 067
  2. INTRAROSA [Suspect]
     Active Substance: PRASTERONE
     Indication: Vulvovaginal discomfort
  3. CLONAZEPAM [Concomitant]
     Active Substance: CLONAZEPAM
  4. DILTIAZEM [Concomitant]
     Active Substance: DILTIAZEM
  5. DULOXETINE HYDROCHLORIDE [Concomitant]
     Active Substance: DULOXETINE HYDROCHLORIDE
  6. Teva fluticasone [Concomitant]
  7. IRBESARTAN [Concomitant]
     Active Substance: IRBESARTAN
  8. MONTELUKAST [Concomitant]
     Active Substance: MONTELUKAST
  9. PANTOPRAZOLE [Concomitant]
     Active Substance: PANTOPRAZOLE

REACTIONS (3)
  - Vomiting [Recovered/Resolved]
  - Vulvovaginal burning sensation [Recovered/Resolved]
  - Off label use [Unknown]
